FAERS Safety Report 4895116-X (Version None)
Quarter: 2006Q1

REPORT INFORMATION
  Report Type: 
  Country: None (occurrence: None)
  Receive Date: 20060126
  Receipt Date: 20060126
  Transmission Date: 20060701
  Serious: Yes (Hospitalization, Other)
  Sender: FDA-Public Use
  Company Number: None

PATIENT
  Sex: Male
  Weight: 94.3 kg

DRUGS (2)
  1. TEMODAR [Suspect]
     Indication: GLIOBLASTOMA MULTIFORME
     Dosage: SEE IMAGE
     Dates: start: 20050912
  2. RADIATION [Suspect]
     Dosage: SEE IMAGE
     Dates: start: 20050912

REACTIONS (5)
  - APHASIA [None]
  - DISTURBANCE IN ATTENTION [None]
  - GLIOBLASTOMA MULTIFORME [None]
  - LEUKOPENIA [None]
  - NEUTROPENIA [None]
